FAERS Safety Report 8518599-2 (Version None)
Quarter: 2012Q3

REPORT INFORMATION
  Report Type: 
  Country: None (occurrence: None)
  Receive Date: 20120718
  Receipt Date: 20110622
  Transmission Date: 20120928
  Serious: No
  Sender: FDA-Public Use
  Company Number: US-BRISTOL-MYERS SQUIBB COMPANY-15368103

PATIENT
  Age: 75 Year
  Sex: Female

DRUGS (1)
  1. WARFARIN SODIUM [Suspect]
     Indication: CARDIAC OPERATION
     Dates: start: 20100701

REACTIONS (9)
  - NAUSEA [None]
  - THROAT IRRITATION [None]
  - ANORECTAL DISCOMFORT [None]
  - MALAISE [None]
  - FREQUENT BOWEL MOVEMENTS [None]
  - FAECES DISCOLOURED [None]
  - DIZZINESS [None]
  - FALL [None]
  - CONTUSION [None]
